FAERS Safety Report 5442860-1 (Version None)
Quarter: 2007Q3

REPORT INFORMATION
  Report Type: 
  Country: None (occurrence: None)
  Receive Date: 20070830
  Receipt Date: 20070820
  Transmission Date: 20080115
  Serious: Yes (Hospitalization, Other)
  Sender: FDA-Public Use
  Company Number: 2007BI017748

PATIENT
  Sex: Female

DRUGS (1)
  1. NATALIZUMAB [Suspect]
     Indication: MULTIPLE SCLEROSIS
     Dosage: IV
     Route: 042
     Dates: start: 20061129

REACTIONS (6)
  - ASTHMA [None]
  - CARDIOMEGALY [None]
  - CONDITION AGGRAVATED [None]
  - DEPRESSION [None]
  - MEMORY IMPAIRMENT [None]
  - OXYGEN SATURATION DECREASED [None]
